FAERS Safety Report 7810332-2 (Version None)
Quarter: 2011Q4

REPORT INFORMATION
  Report Type: 
  Country: None (occurrence: None)
  Receive Date: 20111012
  Receipt Date: 20111006
  Transmission Date: 20120403
  Serious: Yes (Hospitalization, Other)
  Sender: FDA-Public Use
  Company Number: DE-AMGEN-DEUSP2011051024

PATIENT
  Age: 73 Year
  Sex: Female

DRUGS (1)
  1. PROLIA [Suspect]
     Indication: OSTEOPOROSIS
     Dosage: |UNK UNK, ONE TIME DOSE
     Dates: start: 20110404, end: 20110404

REACTIONS (6)
  - BASEDOW'S DISEASE [None]
  - HYPERTHYROIDISM [None]
  - AUTOIMMUNE THYROIDITIS [None]
  - THYROID NEOPLASM [None]
  - URINARY TRACT INFECTION [None]
  - PARATHYROID TUMOUR BENIGN [None]
